FAERS Safety Report 17370969 (Version 1)
Quarter: 2020Q1

REPORT INFORMATION
  Report Type: Spontaneous
  Country: US (occurrence: US)
  Receive Date: 20200205
  Receipt Date: 20200205
  Transmission Date: 20200409
  Serious: No
  Sender: FDA-Public Use
  Company Number: US-SA-2020SA027396

PATIENT
  Age: 58 Year
  Sex: Male

DRUGS (1)
  1. ADMELOG [Suspect]
     Active Substance: INSULIN LISPRO
     Dosage: SLIDING SCALE IN EVERY MEAL
     Route: 065

REACTIONS (2)
  - Unevaluable event [Unknown]
  - Headache [Unknown]
